FAERS Safety Report 9866870 (Version 3)
Quarter: 2014Q1

REPORT INFORMATION
  Report Type: Report from Study
  Country: BR (occurrence: BR)
  Receive Date: 20140204
  Receipt Date: 20140303
  Transmission Date: 20141002
  Serious: Yes (Other)
  Sender: FDA-Public Use
  Company Number: BR-ROCHE-1250658

PATIENT
  Sex: Male
  Weight: 120 kg

DRUGS (3)
  1. INTERFERON ALFA-2A [Suspect]
     Indication: HEPATITIS C
     Route: 042
     Dates: start: 2006
  2. RIBAVIRIN [Suspect]
     Indication: HEPATITIS C
     Route: 065
     Dates: start: 2006
  3. ACETYLSALICYLIC ACID [Concomitant]
     Route: 065

REACTIONS (10)
  - Depression [Unknown]
  - Hepatitis C [Not Recovered/Not Resolved]
  - Intervertebral disc protrusion [Not Recovered/Not Resolved]
  - Urine odour abnormal [Not Recovered/Not Resolved]
  - Diabetes mellitus [Unknown]
  - Hypertension [Unknown]
  - Labyrinthitis [Unknown]
  - Visual impairment [Unknown]
  - Blood disorder [Unknown]
  - Weight decreased [Unknown]
